FAERS Safety Report 8855082 (Version 2)
Quarter: 2014Q2

REPORT INFORMATION
  Report Type: Report from Study
  Country: NL (occurrence: NL)
  Receive Date: 20121023
  Receipt Date: 20140505
  Transmission Date: 20141212
  Serious: Yes (Hospitalization, Disabling)
  Sender: FDA-Public Use
  Company Number: NL-ELI_LILLY_AND_COMPANY-NL201210004199

PATIENT
  Age: 57 Year
  Sex: Female
  Weight: 60 kg

DRUGS (15)
  1. PEMETREXED [Suspect]
     Indication: NON-SMALL CELL LUNG CANCER
     Dosage: 824 UNK, UNK
     Route: 042
     Dates: start: 20121003
  2. BEVACIZUMAB [Suspect]
     Indication: NON-SMALL CELL LUNG CANCER
     Dosage: UNK UNK, OTHER
     Route: 042
     Dates: start: 20121003
  3. CISPLATIN [Suspect]
     Indication: NON-SMALL CELL LUNG CANCER
     Dosage: UNK UNK, OTHER
     Route: 042
     Dates: start: 20121003
  4. PARACETAMOL [Concomitant]
     Indication: MUSCULOSKELETAL PAIN
     Dosage: 1000 MG, UNK
     Route: 048
     Dates: start: 20120608, end: 20120930
  5. OXYCONTIN [Concomitant]
     Indication: MUSCULOSKELETAL PAIN
     Dosage: 10 MG, OTHER
     Route: 048
     Dates: start: 20120822, end: 20121121
  6. OXYNORM [Concomitant]
     Indication: MUSCULOSKELETAL PAIN
     Dosage: 5 MG, PRN
     Route: 048
     Dates: start: 20120822, end: 20121121
  7. MOVICOLON [Concomitant]
     Indication: PROPHYLAXIS
     Dosage: 1 DF, UNK
     Route: 048
     Dates: start: 20120822, end: 20121121
  8. FOLIC ACID [Concomitant]
     Indication: PROPHYLAXIS
     Dosage: UNK
     Route: 048
     Dates: start: 20120814
  9. DEXAMETHASONE [Concomitant]
     Indication: PROPHYLAXIS
     Dosage: 8 MG, UNK
     Route: 048
     Dates: start: 20121002, end: 20121002
  10. DEXAMETHASONE [Concomitant]
     Dosage: 10 MG, UNK
     Route: 042
     Dates: start: 20121003, end: 20121004
  11. ONDANSETRON [Concomitant]
     Indication: PROPHYLAXIS
     Dosage: 8 MG, UNK
     Route: 042
     Dates: start: 20121003, end: 20121004
  12. APREPITANT [Concomitant]
     Dosage: 125 MG, UNK
     Route: 048
     Dates: start: 20121003, end: 20121003
  13. APREPITANT [Concomitant]
     Dosage: 80 MG, UNK
     Route: 048
     Dates: start: 20121004, end: 20121005
  14. SALBUTAMOL [Concomitant]
     Indication: DYSPNOEA
     Dosage: 100 UG, UNK
     Route: 055
     Dates: start: 201209
  15. SERETIDE [Concomitant]
     Indication: DYSPNOEA
     Dosage: UNK
     Route: 055
     Dates: start: 20070907, end: 20121017

REACTIONS (1)
  - Cardiac failure [Recovered/Resolved]
